FAERS Safety Report 5851656-8 (Version None)
Quarter: 2008Q3

REPORT INFORMATION
  Report Type: 
  Country: None (occurrence: None)
  Receive Date: 20080731
  Receipt Date: 20080626
  Transmission Date: 20090109
  Serious: No
  Sender: FDA-Public Use
  Company Number: US200705003096

PATIENT
  Age: 63 Year
  Sex: Female
  Weight: 107.5 kg

DRUGS (20)
  1. BYETTA [Suspect]
     Indication: INSULIN-REQUIRING TYPE 2 DIABETES MELLITUS
     Dosage: SEE IMAGE
     Route: 058
     Dates: start: 20070101, end: 20070101
  2. BYETTA [Suspect]
     Indication: INSULIN-REQUIRING TYPE 2 DIABETES MELLITUS
     Dosage: SEE IMAGE
     Route: 058
     Dates: start: 20080101, end: 20080201
  3. BYETTA [Suspect]
     Indication: INSULIN-REQUIRING TYPE 2 DIABETES MELLITUS
     Dosage: SEE IMAGE
     Route: 058
     Dates: start: 20070101
  4. BYETTA [Suspect]
     Indication: INSULIN-REQUIRING TYPE 2 DIABETES MELLITUS
     Dosage: SEE IMAGE
     Route: 058
     Dates: start: 20080201
  5. BYETTA [Suspect]
  6. BYETTA [Suspect]
  7. GLYNASE [Concomitant]
  8. LEVOXYL [Concomitant]
  9. GLYBURIDE [Concomitant]
  10. METFORMIN HCL [Concomitant]
  11. ZETIA [Concomitant]
  12. LANTUS [Concomitant]
  13. CALTRATE (CALCIUM, VITAMIN D NOS) [Concomitant]
  14. ALTACE [Concomitant]
  15. MOBIC [Concomitant]
  16. ACTONEL [Concomitant]
  17. LIPITOR [Concomitant]
  18. MELATONIN (MELATONIN) [Concomitant]
  19. TRAMADOL HCL [Concomitant]
  20. YEAST TAB [Concomitant]

REACTIONS (20)
  - ABDOMINAL DISTENSION [None]
  - BLOOD GLUCOSE DECREASED [None]
  - BLOOD GLUCOSE INCREASED [None]
  - CONFUSIONAL STATE [None]
  - DECREASED APPETITE [None]
  - ERUCTATION [None]
  - FATIGUE [None]
  - FLATULENCE [None]
  - FOOD CRAVING [None]
  - GASTROOESOPHAGEAL REFLUX DISEASE [None]
  - MEMORY IMPAIRMENT [None]
  - NAUSEA [None]
  - SLEEP DISORDER [None]
  - TREMOR [None]
  - VISION BLURRED [None]
  - VISUAL ACUITY REDUCED [None]
  - VISUAL IMPAIRMENT [None]
  - VOMITING [None]
  - WEIGHT DECREASED [None]
  - WEIGHT INCREASED [None]
